FAERS Safety Report 5365154-1 (Version None)
Quarter: 2007Q2

REPORT INFORMATION
  Report Type: 
  Country: None (occurrence: None)
  Receive Date: 20070621
  Receipt Date: 20070608
  Transmission Date: 20071010
  Serious: Yes (Life-Threatening, Hospitalization, Disabling, Other)
  Sender: FDA-Public Use
  Company Number: US-BAYER-200411935BWH

PATIENT
  Age: 21 Year
  Sex: Female

DRUGS (8)
  1. AVELOX [Suspect]
     Indication: SINUSITIS
     Route: 048
     Dates: start: 20031120, end: 20031120
  2. ORTHO TRI-CYCLEN [Concomitant]
  3. RHINOCORT [Concomitant]
  4. ZOMIG [Concomitant]
  5. SUDAFED 12 HOUR [Concomitant]
  6. ADVIL [Concomitant]
  7. TEGRETOL [Concomitant]
  8. NEURONTIN [Concomitant]

REACTIONS (22)
  - ANAPHYLACTIC REACTION [None]
  - ANOXIC ENCEPHALOPATHY [None]
  - APALLIC SYNDROME [None]
  - BRAIN DAMAGE [None]
  - BRAIN OEDEMA [None]
  - CARDIO-RESPIRATORY ARREST [None]
  - CYANOSIS [None]
  - DEPRESSED LEVEL OF CONSCIOUSNESS [None]
  - DISSEMINATED INTRAVASCULAR COAGULATION [None]
  - DYSPNOEA [None]
  - GRAND MAL CONVULSION [None]
  - HEPATIC FAILURE [None]
  - HYPERGLYCAEMIA [None]
  - HYPOKALAEMIA [None]
  - HYPOTENSION [None]
  - MUCOUS MEMBRANE DISORDER [None]
  - PARALYSIS [None]
  - PNEUMOTHORAX [None]
  - PSEUDOMONAL BACTERAEMIA [None]
  - RESPIRATORY ARREST [None]
  - RESPIRATORY FAILURE [None]
  - STAPHYLOCOCCAL INFECTION [None]
